FAERS Safety Report 7986543-2 (Version None)
Quarter: 2011Q4

REPORT INFORMATION
  Report Type: 
  Country: None (occurrence: None)
  Receive Date: 20111216
  Receipt Date: 20111212
  Transmission Date: 20120403
  Serious: Yes (Hospitalization, Other)
  Sender: FDA-Public Use
  Company Number: FR-PFIZER INC-2011190666

PATIENT
  Age: 90 Year
  Sex: Female

DRUGS (7)
  1. BISOPROLOL FUMARATE [Concomitant]
     Dosage: UNK
  2. AMIODARONE [Concomitant]
     Dosage: UNK
  3. RAMIPRIL [Suspect]
     Indication: HYPERTENSION
     Dosage: UNK
     Route: 048
  4. ASPIRIN [Concomitant]
     Dosage: UNK
  5. LASIX [Suspect]
     Indication: HYPERTENSION
     Dosage: UNK
     Route: 048
  6. ESOMEPRAZOLE [Suspect]
     Indication: GASTROOESOPHAGEAL REFLUX DISEASE
     Dosage: UNK
     Route: 048
  7. CITALOPRAM HYDROBROMIDE [Suspect]
     Indication: AFFECTIVE DISORDER
     Dosage: 20 MG, UNK
     Route: 048
     Dates: start: 20110712, end: 20110715

REACTIONS (11)
  - HYPONATRAEMIA [None]
  - DECREASED APPETITE [None]
  - INAPPROPRIATE ANTIDIURETIC HORMONE SECRETION [None]
  - HYPERTENSION [None]
  - ABDOMINAL DISTENSION [None]
  - LYMPHADENOPATHY [None]
  - NAUSEA [None]
  - DYSPEPSIA [None]
  - FLATULENCE [None]
  - RENAL FAILURE [None]
  - AFFECTIVE DISORDER [None]
